FAERS Safety Report 18918187 (Version 3)
Quarter: 2021Q1

REPORT INFORMATION
  Report Type: Spontaneous
  Country: US (occurrence: US)
  Receive Date: 20210220
  Receipt Date: 20210309
  Transmission Date: 20210420
  Serious: Yes (Hospitalization, Other)
  Sender: FDA-Public Use
  Company Number: US-ELI_LILLY_AND_COMPANY-US202102009953

PATIENT
  Sex: Male

DRUGS (3)
  1. HUMULIN R [Suspect]
     Active Substance: INSULIN HUMAN
     Indication: PRODUCT USED FOR UNKNOWN INDICATION
     Dosage: UNK UNK, PRN
     Route: 065
     Dates: start: 2012
  2. HUMULIN N [Suspect]
     Active Substance: INSULIN HUMAN
     Indication: PRODUCT USED FOR UNKNOWN INDICATION
     Dosage: 80 U, DAILY
     Route: 065
     Dates: start: 2012
  3. PREDNISONE. [Suspect]
     Active Substance: PREDNISONE
     Indication: RHEUMATOID ARTHRITIS
     Dosage: UNK UNK, UNKNOWN
     Route: 065

REACTIONS (6)
  - Diabetes mellitus inadequate control [Unknown]
  - Feeling abnormal [Unknown]
  - Visual impairment [Unknown]
  - Nocturia [Unknown]
  - Diabetic ketoacidosis [Recovered/Resolved]
  - Blood glucose increased [Unknown]

NARRATIVE: CASE EVENT DATE: 2017
